FAERS Safety Report 6622176-8 (Version None)
Quarter: 2010Q1

REPORT INFORMATION
  Report Type: 
  Country: None (occurrence: None)
  Receive Date: 20100305
  Receipt Date: 20100224
  Transmission Date: 20100710
  Serious: Yes (Hospitalization)
  Sender: FDA-Public Use
  Company Number: TRP_06742_2010

PATIENT
  Sex: Female

DRUGS (2)
  1. RIBAPAK (NOT SPECIFIED) [Suspect]
     Indication: HEPATITIS C
     Dosage: ORAL
     Route: 048
     Dates: start: 20091123
  2. PEG-INTRON [Suspect]
     Indication: HEPATITIS C
     Dosage: SUBCUTANEOUS
     Route: 058
     Dates: start: 20091123

REACTIONS (10)
  - ASTHENIA [None]
  - CHEST PAIN [None]
  - CHRONIC OBSTRUCTIVE PULMONARY DISEASE [None]
  - DIARRHOEA [None]
  - EXCORIATION [None]
  - FALL [None]
  - HYPERSOMNIA [None]
  - MEMORY IMPAIRMENT [None]
  - PNEUMONIA [None]
  - RED BLOOD CELL COUNT DECREASED [None]
